FAERS Safety Report 14298131 (Version 1)
Quarter: 2017Q4

REPORT INFORMATION
  Report Type: Spontaneous
  Country: US (occurrence: US)
  Receive Date: 20171218
  Receipt Date: 20171218
  Transmission Date: 20180321
  Serious: Yes (Other)
  Sender: FDA-Public Use
  Company Number: US-BAYER-2017-243263

PATIENT
  Age: 29 Year
  Sex: Female

DRUGS (1)
  1. MIRENA [Suspect]
     Active Substance: LEVONORGESTREL
     Dosage: UNK
     Dates: start: 20150305, end: 20151106

REACTIONS (7)
  - Photopsia [None]
  - Vitreous floaters [None]
  - Papilloedema [None]
  - Idiopathic intracranial hypertension [None]
  - Tinnitus [None]
  - Photophobia [None]
  - Headache [None]

NARRATIVE: CASE EVENT DATE: 20151103
